FAERS Safety Report 9484688 (Version 1)
Quarter: 2013Q3

REPORT INFORMATION
  Report Type: Spontaneous
  Country: US (occurrence: US)
  Receive Date: 20130828
  Receipt Date: 20130828
  Transmission Date: 20140515
  Serious: Yes (Hospitalization)
  Sender: FDA-Public Use
  Company Number: US-AMGEN-KDL437048

PATIENT
  Age: 49 Year
  Sex: Female

DRUGS (2)
  1. ENBREL [Suspect]
     Indication: PSORIATIC ARTHROPATHY
     Dosage: 50 MG, QWK
     Route: 058
     Dates: start: 20070515, end: 200902
  2. ENBREL [Suspect]
     Indication: PSORIASIS

REACTIONS (4)
  - Abdominal hernia [Unknown]
  - Peritonitis [Unknown]
  - Impaired healing [Recovered/Resolved]
  - Psoriasis [Not Recovered/Not Resolved]
